FAERS Safety Report 25721619 (Version 1)
Quarter: 2025Q3

REPORT INFORMATION
  Report Type: Spontaneous
  Country: EU (occurrence: EU)
  Receive Date: 20250825
  Receipt Date: 20250825
  Transmission Date: 20251021
  Serious: Yes (Hospitalization, Other)
  Sender: MYLAN
  Company Number: EU-RICHTER-2025-GR-009235

PATIENT
  Age: 20 Year
  Sex: Male

DRUGS (52)
  1. SERTRALINE [Suspect]
     Active Substance: SERTRALINE HYDROCHLORIDE
     Indication: Product used for unknown indication
  2. SERTRALINE [Suspect]
     Active Substance: SERTRALINE HYDROCHLORIDE
     Route: 065
  3. SERTRALINE [Suspect]
     Active Substance: SERTRALINE HYDROCHLORIDE
     Route: 065
  4. SERTRALINE [Suspect]
     Active Substance: SERTRALINE HYDROCHLORIDE
  5. MEMANTINE [Suspect]
     Active Substance: MEMANTINE
     Indication: Product used for unknown indication
  6. MEMANTINE [Suspect]
     Active Substance: MEMANTINE
     Route: 065
  7. MEMANTINE [Suspect]
     Active Substance: MEMANTINE
     Route: 065
  8. MEMANTINE [Suspect]
     Active Substance: MEMANTINE
  9. DULOXETINE [Suspect]
     Active Substance: DULOXETINE
     Indication: Product used for unknown indication
  10. DULOXETINE [Suspect]
     Active Substance: DULOXETINE
     Route: 065
  11. DULOXETINE [Suspect]
     Active Substance: DULOXETINE
     Route: 065
  12. DULOXETINE [Suspect]
     Active Substance: DULOXETINE
  13. PREGABALIN [Suspect]
     Active Substance: PREGABALIN
     Indication: Product used for unknown indication
  14. PREGABALIN [Suspect]
     Active Substance: PREGABALIN
     Route: 065
  15. PREGABALIN [Suspect]
     Active Substance: PREGABALIN
     Route: 065
  16. PREGABALIN [Suspect]
     Active Substance: PREGABALIN
  17. QUETIAPINE [Suspect]
     Active Substance: QUETIAPINE
     Indication: Product used for unknown indication
  18. QUETIAPINE [Suspect]
     Active Substance: QUETIAPINE
     Route: 065
  19. QUETIAPINE [Suspect]
     Active Substance: QUETIAPINE
     Route: 065
  20. QUETIAPINE [Suspect]
     Active Substance: QUETIAPINE
  21. SILDENAFIL [Suspect]
     Active Substance: SILDENAFIL
     Indication: Erectile dysfunction
  22. SILDENAFIL [Suspect]
     Active Substance: SILDENAFIL
     Route: 065
  23. SILDENAFIL [Suspect]
     Active Substance: SILDENAFIL
     Route: 065
  24. SILDENAFIL [Suspect]
     Active Substance: SILDENAFIL
  25. METHYLPHENIDATE [Suspect]
     Active Substance: METHYLPHENIDATE
     Indication: Product used for unknown indication
  26. METHYLPHENIDATE [Suspect]
     Active Substance: METHYLPHENIDATE
     Route: 065
  27. METHYLPHENIDATE [Suspect]
     Active Substance: METHYLPHENIDATE
     Route: 065
  28. METHYLPHENIDATE [Suspect]
     Active Substance: METHYLPHENIDATE
  29. TRAMADOL [Suspect]
     Active Substance: TRAMADOL
     Indication: Product used for unknown indication
  30. TRAMADOL [Suspect]
     Active Substance: TRAMADOL
     Route: 065
  31. TRAMADOL [Suspect]
     Active Substance: TRAMADOL
     Route: 065
  32. TRAMADOL [Suspect]
     Active Substance: TRAMADOL
  33. DEXTROMETHORPHAN HYDROBROMIDE [Suspect]
     Active Substance: DEXTROMETHORPHAN HYDROBROMIDE
     Indication: Product used for unknown indication
  34. DEXTROMETHORPHAN HYDROBROMIDE [Suspect]
     Active Substance: DEXTROMETHORPHAN HYDROBROMIDE
     Route: 065
  35. DEXTROMETHORPHAN HYDROBROMIDE [Suspect]
     Active Substance: DEXTROMETHORPHAN HYDROBROMIDE
     Route: 065
  36. DEXTROMETHORPHAN HYDROBROMIDE [Suspect]
     Active Substance: DEXTROMETHORPHAN HYDROBROMIDE
  37. CLONAZEPAM [Suspect]
     Active Substance: CLONAZEPAM
     Indication: Product used for unknown indication
  38. CLONAZEPAM [Suspect]
     Active Substance: CLONAZEPAM
     Route: 065
  39. CLONAZEPAM [Suspect]
     Active Substance: CLONAZEPAM
     Route: 065
  40. CLONAZEPAM [Suspect]
     Active Substance: CLONAZEPAM
  41. TESTOSTERONE [Suspect]
     Active Substance: TESTOSTERONE
     Indication: Hypogonadism
  42. TESTOSTERONE [Suspect]
     Active Substance: TESTOSTERONE
     Route: 065
  43. TESTOSTERONE [Suspect]
     Active Substance: TESTOSTERONE
     Route: 065
  44. TESTOSTERONE [Suspect]
     Active Substance: TESTOSTERONE
  45. BUPRENORPHINE [Suspect]
     Active Substance: BUPRENORPHINE
     Indication: Product used for unknown indication
  46. BUPRENORPHINE [Suspect]
     Active Substance: BUPRENORPHINE
     Route: 065
  47. BUPRENORPHINE [Suspect]
     Active Substance: BUPRENORPHINE
     Route: 065
  48. BUPRENORPHINE [Suspect]
     Active Substance: BUPRENORPHINE
  49. CODEINE [Suspect]
     Active Substance: CODEINE
     Indication: Product used for unknown indication
  50. CODEINE [Suspect]
     Active Substance: CODEINE
     Route: 065
  51. CODEINE [Suspect]
     Active Substance: CODEINE
     Route: 065
  52. CODEINE [Suspect]
     Active Substance: CODEINE

REACTIONS (4)
  - Drug dependence [Unknown]
  - Drug abuse [Unknown]
  - Intentional product misuse [Unknown]
  - Intentional overdose [Unknown]
